FAERS Safety Report 8112125 (Version 5)
Quarter: 2013Q2

REPORT INFORMATION
  Report Type: Report from Study
  Country: None (occurrence: JP)
  Receive Date: 20110830
  Receipt Date: 20130531
  Transmission Date: 20140414
  Serious: Yes (Death, Hospitalization)
  Sender: FDA-Public Use
  Company Number: JP-EISAI INC-E7389-01405-SPO-JP

PATIENT
  Age: 65 Year
  Sex: Female
  Weight: 45 kg

DRUGS (18)
  1. HALAVEN [Suspect]
     Indication: BREAST CANCER RECURRENT
     Route: 041
     Dates: start: 20110729, end: 20110729
  2. HALAVEN [Suspect]
     Indication: METASTASES TO LIVER
     Route: 041
     Dates: start: 20110817, end: 20111012
  3. HALAVEN [Suspect]
     Indication: METASTASES TO LUNG
     Route: 041
     Dates: start: 20111105, end: 20111201
  4. HALAVEN [Suspect]
     Indication: METASTASES TO ADRENALS
  5. HERCEPTIN [Concomitant]
     Indication: BREAST CANCER RECURRENT
     Route: 065
  6. MAGMITT [Concomitant]
     Indication: CONSTIPATION
     Route: 048
  7. TAKEPRON [Concomitant]
     Indication: GASTRITIS
     Route: 048
  8. CALONAL [Concomitant]
     Route: 048
  9. GASMOTIN [Concomitant]
     Indication: GASTRITIS
     Route: 048
  10. MUCOSTA [Concomitant]
     Indication: GASTRITIS
     Route: 048
  11. TRAMAL [Concomitant]
     Indication: GENERAL SYMPTOM
     Route: 048
  12. WYPAX [Concomitant]
     Route: 048
  13. FAMOGAST D [Concomitant]
     Indication: GASTRITIS
     Route: 065
  14. DEXART [Concomitant]
     Indication: PROPHYLAXIS
     Route: 041
  15. DUROPTEP [Concomitant]
     Indication: GENERAL SYMPTOM
     Route: 065
  16. OPSO [Concomitant]
     Indication: GENERAL SYMPTOM
     Route: 048
  17. OMEPRAZOLE [Concomitant]
     Indication: GASTRITIS
     Route: 065
  18. PENTAGIN [Concomitant]
     Indication: GENERAL SYMPTOM
     Route: 065

REACTIONS (5)
  - Febrile neutropenia [Recovered/Resolved]
  - Cholangitis acute [Not Recovered/Not Resolved]
  - Haemobilia [Recovering/Resolving]
  - Hepatic function abnormal [Recovered/Resolved]
  - Malignant neoplasm progression [Fatal]
